FAERS Safety Report 4293923-8 (Version None)
Quarter: 2004Q1

REPORT INFORMATION
  Report Type: 
  Country: None (occurrence: None)
  Receive Date: 20040211
  Receipt Date: 20040126
  Transmission Date: 20041129
  Serious: Yes (Death, Hospitalization, Other)
  Sender: FDA-Public Use
  Company Number: USA031049667

PATIENT
  Age: 73 Year
  Sex: Female
  Weight: 55 kg

DRUGS (15)
  1. FORTEO [Suspect]
     Indication: OSTEOPOROSIS
     Dosage: 20 UG/DAY
     Dates: start: 20030708
  2. PRILOSEC [Concomitant]
  3. ZOLOFT [Concomitant]
  4. CARDURA [Concomitant]
  5. ACIPHEX [Concomitant]
  6. XANAX [Concomitant]
  7. NITRO PATCH (GLYCERYL TRINITRATE) [Concomitant]
  8. PREDNISONE [Concomitant]
  9. VERAPAMIL [Concomitant]
  10. PLAVIX [Concomitant]
  11. CALTRATE (CALCIUM CARBONATE) [Concomitant]
  12. WELLBUTRIN [Concomitant]
  13. LORTAB [Concomitant]
  14. ADVAIR DISKUS 100/50 [Concomitant]
  15. LIPITOR [Concomitant]

REACTIONS (8)
  - ANOREXIA [None]
  - BLOOD SODIUM DECREASED [None]
  - CONDITION AGGRAVATED [None]
  - KIDNEY INFECTION [None]
  - NAUSEA [None]
  - PNEUMONIA [None]
  - PULMONARY FIBROSIS [None]
  - VOMITING [None]
